FAERS Safety Report 23740712 (Version 1)
Quarter: 2024Q2

REPORT INFORMATION
  Report Type: Spontaneous
  Country: IT (occurrence: IT)
  Receive Date: 20240415
  Receipt Date: 20240415
  Transmission Date: 20240716
  Serious: Yes (Other)
  Sender: FDA-Public Use
  Company Number: None

PATIENT
  Age: 55 Year
  Sex: Male

DRUGS (3)
  1. GEMCITABINE [Suspect]
     Active Substance: GEMCITABINE
     Indication: Lung adenocarcinoma
     Dosage: 1002.40 MG IN DATA 10/01/2024?GEMCITABINA
     Route: 042
     Dates: start: 20240110, end: 20240110
  2. DURFENTA [Concomitant]
     Indication: Product used for unknown indication
     Dosage: 25 MCG/HOUR
     Route: 062
     Dates: start: 202401
  3. CISPLATIN [Concomitant]
     Active Substance: CISPLATIN
     Indication: Lung adenocarcinoma
     Dosage: CISPLATINO
     Route: 042
     Dates: start: 20240110, end: 20240112

REACTIONS (1)
  - Thrombocytopenia [Recovered/Resolved]

NARRATIVE: CASE EVENT DATE: 20240117
